FAERS Safety Report 21415798 (Version 2)
Quarter: 2022Q4

REPORT INFORMATION
  Report Type: Spontaneous
  Country: US (occurrence: US)
  Receive Date: 20221006
  Receipt Date: 20221010
  Transmission Date: 20230113
  Serious: No
  Sender: FDA-Public Use
  Company Number: US-TOLMAR, INC.-22US036865

PATIENT
  Age: 8 Year
  Sex: Female

DRUGS (1)
  1. FENSOLVI [Suspect]
     Active Substance: LEUPROLIDE ACETATE
     Indication: Precocious puberty
     Dosage: 45 MILLIGRAM, Q 6 MONTH
     Route: 058
     Dates: start: 20220922

REACTIONS (2)
  - Incorrect dose administered [Unknown]
  - Injection site discharge [Unknown]

NARRATIVE: CASE EVENT DATE: 20220922
